FAERS Safety Report 8302341-4 (Version None)
Quarter: 2012Q1

REPORT INFORMATION
  Report Type: 
  Country: None (occurrence: None)
  Receive Date: 20120326
  Receipt Date: 20110701
  Transmission Date: 20120608
  Serious: Yes (Other)
  Sender: FDA-Public Use
  Company Number: PHHY2011US38930

PATIENT

DRUGS (1)
  1. VIVELLE-DOT [Suspect]
     Dosage: 0.1 MG, TRANSDERMAL
     Route: 062

REACTIONS (8)
  - SYNCOPE [None]
  - DIZZINESS [None]
  - FATIGUE [None]
  - ASTHENIA [None]
  - DRUG DISPENSING ERROR [None]
  - SKIN BURNING SENSATION [None]
  - EXPIRED DRUG ADMINISTERED [None]
  - DEPRESSION [None]
